FAERS Safety Report 8617067-7 (Version None)
Quarter: 2012Q3

REPORT INFORMATION
  Report Type: 
  Country: None (occurrence: None)
  Receive Date: 20120823
  Receipt Date: 20120814
  Transmission Date: 20120928
  Serious: No
  Sender: FDA-Public Use
  Company Number: US-009507513-1208USA006579

PATIENT

DRUGS (3)
  1. COREG [Concomitant]
  2. LISINOPRIL [Concomitant]
  3. IMPLANON [Suspect]
     Indication: CONTRACEPTION

REACTIONS (3)
  - DEVICE BREAKAGE [None]
  - ABDOMINAL TENDERNESS [None]
  - BREAST TENDERNESS [None]
